FAERS Safety Report 26211202 (Version 1)
Quarter: 2025Q4

REPORT INFORMATION
  Report Type: Spontaneous
  Country: US (occurrence: US)
  Receive Date: 20251230
  Receipt Date: 20251230
  Transmission Date: 20260117
  Serious: Yes (Death, Life-Threatening, Hospitalization)
  Sender: DR REDDYS
  Company Number: None

PATIENT
  Age: 85 Year
  Sex: Male

DRUGS (1)
  1. AMIODARONE [Suspect]
     Active Substance: AMIODARONE
     Indication: Product used for unknown indication

REACTIONS (5)
  - Acute respiratory failure [Fatal]
  - Pulmonary alveolar haemorrhage [Unknown]
  - Hypercapnia [Unknown]
  - Acute interstitial pneumonitis [Unknown]
  - Bronchiectasis [Unknown]
